FAERS Safety Report 8439319 (Version 2)
Quarter: 2013Q2

REPORT INFORMATION
  Report Type: Spontaneous
  Country: US (occurrence: None)
  Receive Date: 20120104
  Receipt Date: 20120508
  Transmission Date: 20140414
  Serious: Yes (Other)
  Sender: FDA-Public Use
  Company Number: 2011HGS-002892

PATIENT
  Age: 56 Year
  Sex: Female
  Weight: 79.83 kg

DRUGS (20)
  1. BENLYSTA [Suspect]
     Indication: SYSTEMIC LUPUS ERYTHEMATOSUS
     Dosage: 1 IN 28 D, INTRAVENOUS DRIP
     Dates: start: 20110930
  2. PREDNISONE [Concomitant]
  3. AMITIRPTYLINE (AMITRIPTYLINE) (AMITRIPTYLINE) [Concomitant]
  4. CELLCEPT (MYCOPHENOLATE MOFETIL) (MYCOPHENOLATE MOFETIL) [Concomitant]
  5. VITAMIN B12 (CYANOCOBALAMIN) (CYANOCOBALAMIN) [Concomitant]
  6. TOPAMAX (TOPIRAMATE) (TOPIRAMATE) [Concomitant]
  7. SPIRONOLACTONE [Concomitant]
  8. KCL (POTASSIUM CHLORIDE) (POTASSIUM CHLORIDE) [Concomitant]
  9. OMEPRAZOLE [Concomitant]
  10. MINOXIDIL (MINOXIDIL) (MINOXIDIL) [Concomitant]
  11. HYDROCODONE( HYDORCODONE) (HYDROCODONE) [Concomitant]
  12. NASOCORT (BUDESONIDE) (BUDESONIDE) [Concomitant]
  13. RHINOCORT (BUDESONIDE) (BUDESONIDE) [Concomitant]
  14. FOLIC ACID [Concomitant]
  15. BENICAR [Concomitant]
  16. CLONIDINE TRANSDERMAL SYSTEM [Concomitant]
  17. MAXIDE (DYAZIDE) (HYDROCHLOROTHIAZIDE, TRIAMTERENE) [Concomitant]
  18. FLUOXETINE [Concomitant]
  19. FLUOCINONIDE CREAM (FLUOCINONIDE) (FLUOCINONIDE) [Concomitant]
  20. LABETALOL (LABETALOL) (LABETALOL) [Concomitant]

REACTIONS (3)
  - PRODUCTIVE COUGH [None]
  - Hair growth abnormal [None]
  - Nasopharyngitis [None]
